FAERS Safety Report 7926832-0 (Version None)
Quarter: 2011Q4

REPORT INFORMATION
  Report Type: 
  Country: None (occurrence: None)
  Receive Date: 20111118
  Receipt Date: 20111115
  Transmission Date: 20120403
  Serious: Yes (Other)
  Sender: FDA-Public Use
  Company Number: JP-PFIZER INC-2011280134

PATIENT
  Age: 86 Year
  Sex: Male

DRUGS (3)
  1. LYRICA [Suspect]
     Indication: HYPOAESTHESIA
     Dosage: 300 MG, 2X/DAY
     Dates: start: 20101209
  2. METHYCOBAL [Concomitant]
     Indication: HYPOAESTHESIA
     Dosage: UNK
  3. KINEDAK [Concomitant]
     Indication: HYPOAESTHESIA
     Dosage: UNK

REACTIONS (4)
  - ABASIA [None]
  - MUSCULAR WEAKNESS [None]
  - GROIN PAIN [None]
  - BACK PAIN [None]
